FAERS Safety Report 10615316 (Version 1)
Quarter: 2014Q4

REPORT INFORMATION
  Report Type: Spontaneous
  Country: US (occurrence: None)
  Receive Date: 20141125
  Receipt Date: 20141125
  Transmission Date: 20150529
  Serious: Yes (Disabling)
  Sender: FDA-Public Use
  Company Number: None

PATIENT
  Age: 54 Year
  Sex: Male
  Weight: 90.72 kg

DRUGS (1)
  1. FETZIMA [Suspect]
     Active Substance: LEVOMILNACIPRAN HYDROCHLORIDE
     Indication: DEPRESSION
     Dosage: 1 PILL
     Route: 048
     Dates: start: 20140707, end: 20141101

REACTIONS (6)
  - Urinary hesitation [None]
  - Testicular pain [None]
  - Genital paraesthesia [None]
  - Urinary retention [None]
  - Adverse drug reaction [None]
  - Penile pain [None]

NARRATIVE: CASE EVENT DATE: 20140801
